FAERS Safety Report 17060027 (Version 2)
Quarter: 2019Q4

REPORT INFORMATION
  Report Type: Spontaneous
  Country: US (occurrence: US)
  Receive Date: 20191121
  Receipt Date: 20191213
  Transmission Date: 20200122
  Serious: No
  Sender: FDA-Public Use
  Company Number: US-NOVOPROD-677181

PATIENT
  Age: 59 Year
  Sex: Male

DRUGS (3)
  1. LEVEMIR [Suspect]
     Active Substance: INSULIN DETEMIR
     Indication: TYPE 2 DIABETES MELLITUS
     Dosage: 40 IU
     Route: 058
     Dates: start: 2017
  2. NOVOLOG [Suspect]
     Active Substance: INSULIN ASPART
     Indication: TYPE 2 DIABETES MELLITUS
     Dosage: 30 IU
     Route: 058
     Dates: start: 2017
  3. NOVOLOG [Suspect]
     Active Substance: INSULIN ASPART
     Dosage: INCREASED DOSE
     Route: 058

REACTIONS (5)
  - Malaise [Recovered/Resolved]
  - Gastric disorder [Recovered/Resolved]
  - Pyrexia [Recovered/Resolved]
  - Product quality issue [Unknown]
  - Blood glucose increased [Recovered/Resolved]

NARRATIVE: CASE EVENT DATE: 20190718
